FAERS Safety Report 8339601-7 (Version None)
Quarter: 2012Q2

REPORT INFORMATION
  Report Type: 
  Country: None (occurrence: None)
  Receive Date: 20120507
  Receipt Date: 20120502
  Transmission Date: 20120825
  Serious: Yes (Death, Hospitalization, Other)
  Sender: FDA-Public Use
  Company Number: PHHY2012SA030108

PATIENT
  Age: 28 Year
  Sex: Male

DRUGS (1)
  1. EXJADE [Suspect]
     Indication: IRON OVERLOAD
     Dosage: 1250 MG, DAILY (2 TAB OF 500MG AND 1 TAB OF 250 MG)
     Route: 048

REACTIONS (4)
  - ORGAN FAILURE [None]
  - CARDIO-RESPIRATORY ARREST [None]
  - CARDIAC DISORDER [None]
  - VENTRICULAR REMODELING [None]
